FAERS Safety Report 4996147-1 (Version None)
Quarter: 2006Q2

REPORT INFORMATION
  Report Type: 
  Country: None (occurrence: None)
  Receive Date: 20060504
  Receipt Date: 20060419
  Transmission Date: 20061013
  Serious: Yes (Life-Threatening)
  Sender: FDA-Public Use
  Company Number: 6022120F

PATIENT
  Sex: Female

DRUGS (1)
  1. NIASPAN [Suspect]
     Indication: DYSLIPIDAEMIA
     Dates: start: 20051031, end: 20060301

REACTIONS (1)
  - CEREBRAL HAEMORRHAGE [None]
